FAERS Safety Report 15854206 (Version 1)
Quarter: 2019Q1

REPORT INFORMATION
  Report Type: Spontaneous
  Country: US (occurrence: US)
  Receive Date: 20190122
  Receipt Date: 20190122
  Transmission Date: 20190417
  Serious: No
  Sender: FDA-Public Use
  Company Number: US-TEVA-2018-US-993827

PATIENT
  Sex: Female

DRUGS (1)
  1. AMLODIPINE/VALSARTAN/HYDROCHLOROTHIAZIDE [Suspect]
     Active Substance: AMLODIPINE\HYDROCHLOROTHIAZIDE\VALSARTAN
     Dosage: 5 MG/160 MG/12.5 MG

REACTIONS (3)
  - Blood pressure increased [Unknown]
  - Recalled product administered [Unknown]
  - Headache [Unknown]

NARRATIVE: CASE EVENT DATE: 20181226
